FAERS Safety Report 9095510 (Version 1)
Quarter: 2013Q1

REPORT INFORMATION
  Report Type: Spontaneous
  Country: GB (occurrence: None)
  Receive Date: 20130124
  Receipt Date: 20130124
  Transmission Date: 20140127
  Serious: Yes (Other)
  Sender: FDA-Public Use
  Company Number: 2013AP000083

PATIENT
  Age: 59 Year
  Sex: Female

DRUGS (8)
  1. OMEPRAZOLE (OMEPRAZOLE) [Suspect]
  2. BECLOMETASONE DIPROPIONATE (BECLOMETASONE DIPROPIONATE) [Concomitant]
  3. DOMPERIDONE (DOMPERIDONE) [Concomitant]
  4. E.45 (CREAM E45) [Concomitant]
  5. RANITIDINE (RANITIDINE) [Concomitant]
  6. SODIUM ALGINATE (SODIUM ALGINATE) [Concomitant]
  7. VENTOLIN /00139501/ (SALBUTAMOL) [Concomitant]
  8. RANITIDINE (RANITIDINE) [Concomitant]

REACTIONS (5)
  - Oedema peripheral [None]
  - Fluid retention [None]
  - Lethargy [None]
  - Myalgia [None]
  - Arthralgia [None]
